FAERS Safety Report 6584357-1 (Version None)
Quarter: 2010Q1

REPORT INFORMATION
  Report Type: 
  Country: None (occurrence: None)
  Receive Date: 20100216
  Receipt Date: 20100128
  Transmission Date: 20100710
  Serious: No
  Sender: FDA-Public Use
  Company Number: US-ABBOTT-10P-163-0623421-00

PATIENT
  Sex: Male
  Weight: 69.008 kg

DRUGS (9)
  1. SIMCOR [Suspect]
     Indication: HIGH DENSITY LIPOPROTEIN DECREASED
     Dosage: 500/20MG
     Dates: start: 20100121
  2. SIMCOR [Suspect]
     Indication: BLOOD CHOLESTEROL INCREASED
  3. ASPIRIN [Concomitant]
     Indication: DRUG USE FOR UNKNOWN INDICATION
  4. TOPROL-XL [Concomitant]
     Indication: DRUG USE FOR UNKNOWN INDICATION
  5. LISINOPRIL [Concomitant]
     Indication: DRUG USE FOR UNKNOWN INDICATION
  6. ZEGERID [Concomitant]
     Indication: GASTRIC DISORDER
     Dosage: 40/1100
  7. DAPSONE [Concomitant]
     Indication: PSORIASIS
  8. INSULIN PUMP HUMALOG [Concomitant]
     Indication: TYPE 2 DIABETES MELLITUS
     Dosage: INSULIN PUMP
     Dates: start: 19990101, end: 20100127
  9. INSULIN PUMP HUMALOG [Concomitant]
     Dosage: INSULIN PUMP
     Dates: start: 20100127

REACTIONS (3)
  - BLOOD GLUCOSE INCREASED [None]
  - PRURITUS [None]
  - SKIN BURNING SENSATION [None]
